FAERS Safety Report 9310322 (Version 2)
Quarter: 2013Q2

REPORT INFORMATION
  Report Type: Spontaneous
  Country: AU (occurrence: AU)
  Receive Date: 20130527
  Receipt Date: 20130529
  Transmission Date: 20140414
  Serious: Yes (Death)
  Sender: FDA-Public Use
  Company Number: AU-PFIZER INC-2013158676

PATIENT
  Age: 47 Year
  Sex: Male

DRUGS (2)
  1. SUTENT [Suspect]
     Indication: THYMIC CANCER METASTATIC
     Dosage: 50 MG, CYCLIC (4 WEEKS ON, 2 WEEKS OFF)
     Dates: start: 20130327
  2. SUTENT [Suspect]
     Dosage: 50 MG, CYCLIC (4 WEEKS ON, 2 WEEKS OFF)
     Dates: start: 20130418

REACTIONS (1)
  - Death [Fatal]
